FAERS Safety Report 8339409-2 (Version None)
Quarter: 2012Q2

REPORT INFORMATION
  Report Type: 
  Country: None (occurrence: None)
  Receive Date: 20120507
  Receipt Date: 20120430
  Transmission Date: 20120825
  Serious: Yes (Other)
  Sender: FDA-Public Use
  Company Number: CA-UCBSA-056456

PATIENT
  Age: 84 Year
  Sex: Female

DRUGS (4)
  1. CIMZIA [Suspect]
     Route: 058
     Dates: start: 20111208, end: 20120105
  2. CIMZIA [Suspect]
     Indication: RHEUMATOID ARTHRITIS
     Route: 058
     Dates: start: 20120119, end: 20120101
  3. METHOTREXATE [Concomitant]
     Route: 048
     Dates: start: 20060701
  4. PLAQUENIL [Concomitant]
     Route: 048
     Dates: start: 20100601

REACTIONS (1)
  - HERPES ZOSTER [None]
